FAERS Safety Report 13840210 (Version 1)
Quarter: 2017Q3

REPORT INFORMATION
  Report Type: Spontaneous
  Country: US (occurrence: US)
  Receive Date: 20170807
  Receipt Date: 20170807
  Transmission Date: 20171127
  Serious: Yes (Other)
  Sender: FDA-Public Use
  Company Number: None

PATIENT
  Age: 85 Year
  Sex: Male
  Weight: 84 kg

DRUGS (15)
  1. AMLODIPINE [Concomitant]
     Active Substance: AMLODIPINE BESYLATE
  2. FISH OIL + D3 [Concomitant]
  3. GLYBURIDE-METFORMIN [Concomitant]
  4. CALCIUM 500 + D [Concomitant]
     Active Substance: CALCIUM\VITAMIN D
  5. RESTASIS [Concomitant]
     Active Substance: CYCLOSPORINE
  6. VITAMIN C [Concomitant]
     Active Substance: ASCORBIC ACID
  7. CAPECITABINE. [Suspect]
     Active Substance: CAPECITABINE
     Indication: COLON CANCER
     Route: 048
     Dates: start: 20161110, end: 20170728
  8. PRILOSEC [Concomitant]
     Active Substance: OMEPRAZOLE MAGNESIUM
  9. ATENOLOL. [Concomitant]
     Active Substance: ATENOLOL
  10. FERROUS GLUCONATE [Concomitant]
     Active Substance: FERROUS GLUCONATE
  11. LANTANOPROST [Concomitant]
     Active Substance: LATANOPROST
  12. LOSARTAN. [Concomitant]
     Active Substance: LOSARTAN
  13. SENNA-PLUS [Concomitant]
  14. TAMSULOSIN [Concomitant]
     Active Substance: TAMSULOSIN
  15. SIMVASTATIN. [Concomitant]
     Active Substance: SIMVASTATIN

REACTIONS (2)
  - Malignant neoplasm progression [None]
  - Drug ineffective [None]

NARRATIVE: CASE EVENT DATE: 20170728
